FAERS Safety Report 6317712-5 (Version None)
Quarter: 2009Q3

REPORT INFORMATION
  Report Type: 
  Country: None (occurrence: None)
  Receive Date: 20090821
  Receipt Date: 20090813
  Transmission Date: 20100115
  Serious: No
  Sender: FDA-Public Use
  Company Number: BR-EISAI INC.-E3810-03068-SPO-BR

PATIENT
  Age: 45 Year
  Sex: Female

DRUGS (1)
  1. PARIET (RABEPRAZOLE) [Suspect]
     Dosage: UNKNOWN
     Route: 048
     Dates: start: 20090807

REACTIONS (3)
  - HAEMATOCHEZIA [None]
  - RASH [None]
  - WEIGHT DECREASED [None]
